FAERS Safety Report 18813654 (Version 2)
Quarter: 2021Q1

REPORT INFORMATION
  Report Type: Spontaneous
  Country: JP (occurrence: JP)
  Receive Date: 20210201
  Receipt Date: 20210215
  Transmission Date: 20210419
  Serious: Yes (Death, Other)
  Sender: FDA-Public Use
  Company Number: JP-SAKK-2021SA017551AA

PATIENT
  Age: 77 Year
  Sex: Female
  Weight: 35 kg

DRUGS (4)
  1. LENADEX [Concomitant]
     Active Substance: DEXAMETHASONE ACETATE
     Indication: PLASMA CELL MYELOMA
     Dosage: 40 MG, QW
     Route: 065
     Dates: start: 20201117, end: 20210115
  2. SARCLISA [Suspect]
     Active Substance: ISATUXIMAB-IRFC
     Indication: PLASMA CELL MYELOMA
     Dosage: 350 MG, QOW
     Route: 041
     Dates: start: 20201222, end: 20210105
  3. POMALIDOMIDE [Suspect]
     Active Substance: POMALIDOMIDE
     Indication: PLASMA CELL MYELOMA
     Dosage: DAILY DOSAGE: 4 MG, REPETITIVE CYCLE WITH 21 DAYS OF ORAL ADMINISTRATION FOLLOWED BY 7 DAYS OFF
     Route: 048
     Dates: start: 20201117, end: 20210115
  4. SARCLISA [Suspect]
     Active Substance: ISATUXIMAB-IRFC
     Dosage: 350 MG, QW
     Route: 041
     Dates: start: 20201117, end: 20201208

REACTIONS (2)
  - White blood cell count decreased [Recovered/Resolved]
  - Death [Fatal]

NARRATIVE: CASE EVENT DATE: 20201208
